FAERS Safety Report 11246412 (Version 1)
Quarter: 2015Q3

REPORT INFORMATION
  Report Type: Spontaneous
  Country: US (occurrence: None)
  Receive Date: 20150706
  Receipt Date: 20150706
  Transmission Date: 20151125
  Serious: Yes (Other)
  Sender: FDA-Public Use
  Company Number: None

PATIENT
  Age: 65 Year
  Sex: Male

DRUGS (1)
  1. XTANDI [Suspect]
     Active Substance: ENZALUTAMIDE

REACTIONS (4)
  - Arthralgia [None]
  - Chest pain [None]
  - Musculoskeletal pain [None]
  - Back pain [None]

NARRATIVE: CASE EVENT DATE: 20150701
